FAERS Safety Report 4476767-3 (Version None)
Quarter: 2004Q4

REPORT INFORMATION
  Report Type: 
  Country: None (occurrence: None)
  Receive Date: 20041013
  Receipt Date: 20040923
  Transmission Date: 20050328
  Serious: Yes (Other)
  Sender: FDA-Public Use
  Company Number: US_0409106115

PATIENT
  Age: 84 Year
  Sex: Male

DRUGS (6)
  1. CYMBALTA [Suspect]
     Indication: DEPRESSION
     Dosage: 30 MG DAY
     Dates: start: 20040915, end: 20040921
  2. FLORINEF [Concomitant]
  3. FLOMAX [Concomitant]
  4. ATIVAN [Concomitant]
  5. NEXIUM [Concomitant]
  6. LIBRAX [Concomitant]

REACTIONS (2)
  - LOSS OF CONSCIOUSNESS [None]
  - ORTHOSTATIC HYPOTENSION [None]
